FAERS Safety Report 15841475 (Version 2)
Quarter: 2019Q1

REPORT INFORMATION
  Report Type: Report from Study
  Country: None (occurrence: US)
  Receive Date: 20190118
  Receipt Date: 20190203
  Transmission Date: 20190417
  Serious: Yes (Other)
  Sender: FDA-Public Use
  Company Number: US-ABBVIE-18K-163-2541261-00

PATIENT
  Age: 68 Year
  Sex: Female

DRUGS (1)
  1. HUMIRA [Suspect]
     Active Substance: ADALIMUMAB
     Indication: RHEUMATOID ARTHRITIS
     Dosage: ABOUT TWO YEARS AGO
     Route: 058
     Dates: start: 2017, end: 2019

REACTIONS (7)
  - Malaise [Recovering/Resolving]
  - Post procedural sepsis [Unknown]
  - Pneumonitis [Not Recovered/Not Resolved]
  - Respiratory disorder [Unknown]
  - Pulmonary mass [Not Recovered/Not Resolved]
  - Neck pain [Unknown]
  - Therapeutic response unexpected [Not Recovered/Not Resolved]

NARRATIVE: CASE EVENT DATE: 2017
